FAERS Safety Report 9411716 (Version 1)
Quarter: 2013Q3

REPORT INFORMATION
  Report Type: Spontaneous
  Country: US (occurrence: US)
  Receive Date: 20130722
  Receipt Date: 20130722
  Transmission Date: 20140515
  Serious: No
  Sender: FDA-Public Use
  Company Number: US-COVIDIEN/TYCO HEALTHCARE/MALLINCKRODT-T201301660

PATIENT
  Sex: Male

DRUGS (15)
  1. MORPHINE EXTENDED-RELEASE [Suspect]
     Indication: PAIN
     Dosage: 30 MG BID
     Route: 048
     Dates: start: 20130314
  2. ALENDRONATE [Concomitant]
  3. AMITRIPTYLINE [Concomitant]
  4. CELEBREX [Concomitant]
  5. FOLIC ACID [Concomitant]
  6. GLIPIZIDE [Concomitant]
  7. JANTOVEN [Concomitant]
  8. LISINOPRIL [Concomitant]
  9. OMEPRAZOLE [Concomitant]
  10. PROPRANOLOL [Concomitant]
  11. SIMVASTATIN [Concomitant]
  12. TOPIRAMATE [Concomitant]
  13. VITAMIN D                          /00107901/ [Concomitant]
  14. METFORMIN [Concomitant]
  15. PREDNISONE [Concomitant]

REACTIONS (1)
  - Medication residue present [Unknown]
